FAERS Safety Report 5162450-8 (Version None)
Quarter: 2006Q4

REPORT INFORMATION
  Report Type: 
  Country: None (occurrence: None)
  Receive Date: 20061129
  Receipt Date: 20061129
  Transmission Date: 20070319
  Serious: Yes (Disabling)
  Sender: FDA-Public Use
  Company Number: None

PATIENT
  Age: 50 Year
  Sex: Female
  Weight: 53.5244 kg

DRUGS (1)
  1. FLONASE [Suspect]
     Indication: SINUSITIS
     Dosage: 2 SQUIRTS 2X/DAY
     Dates: start: 19990102, end: 20010102

REACTIONS (1)
  - HERPES OPHTHALMIC [None]
